FAERS Safety Report 15501906 (Version 1)
Quarter: 2018Q4

REPORT INFORMATION
  Report Type: Spontaneous
  Country: US (occurrence: US)
  Receive Date: 20181015
  Receipt Date: 20181015
  Transmission Date: 20190205
  Serious: Yes (Other)
  Sender: FDA-Public Use
  Company Number: US-AMGEN-USASP2018071559

PATIENT
  Age: 69 Year
  Sex: Female
  Weight: 58.14 kg

DRUGS (2)
  1. PROCRIT [Suspect]
     Active Substance: ERYTHROPOIETIN
     Indication: NEPHROGENIC ANAEMIA
     Dosage: 8000 UNIT, Q2WK
     Route: 058
     Dates: end: 2015
  2. PROCRIT [Suspect]
     Active Substance: ERYTHROPOIETIN
     Dosage: 5000 UNIT, Q2WK
     Route: 058
     Dates: start: 2015

REACTIONS (3)
  - Adverse event [Unknown]
  - Seizure [Unknown]
  - Cerebrovascular accident [Unknown]

NARRATIVE: CASE EVENT DATE: 2015
